FAERS Safety Report 10010348 (Version 1)
Quarter: 2014Q1

REPORT INFORMATION
  Report Type: Spontaneous
  Country: US (occurrence: US)
  Receive Date: 20140314
  Receipt Date: 20140314
  Transmission Date: 20141002
  Serious: Yes (Other)
  Sender: FDA-Public Use
  Company Number: US-ASTRAZENECA-2014SE16760

PATIENT
  Sex: Male
  Weight: 119.7 kg

DRUGS (8)
  1. OMEPRAZOLE [Suspect]
     Dosage: TWICE DAILY
     Route: 048
  2. LISINOPRIL [Suspect]
     Route: 048
  3. SUTENT [Concomitant]
     Dates: start: 20140202
  4. GABAPENTIN [Concomitant]
  5. CARAC [Concomitant]
  6. VESICARE [Concomitant]
  7. SIMVASTATIN [Concomitant]
  8. LEVOTHYROXINE [Concomitant]

REACTIONS (11)
  - Renal cell carcinoma [Unknown]
  - Metastases to adrenals [Unknown]
  - Prostate cancer [Unknown]
  - Squamous cell carcinoma [Unknown]
  - Hypertension [Unknown]
  - Hypercholesterolaemia [Unknown]
  - Neuropathy peripheral [Unknown]
  - Food aversion [Unknown]
  - Pain in extremity [Unknown]
  - Gastrooesophageal reflux disease [Unknown]
  - Drug ineffective [Unknown]
